FAERS Safety Report 21720407 (Version 2)
Quarter: 2023Q1

REPORT INFORMATION
  Report Type: Spontaneous
  Country: US (occurrence: US)
  Receive Date: 20221213
  Receipt Date: 20230102
  Transmission Date: 20230418
  Serious: No
  Sender: FDA-Public Use
  Company Number: US-JNJFOC-20221218941

PATIENT
  Age: 62 Year
  Sex: Male

DRUGS (2)
  1. ZYTIGA [Suspect]
     Active Substance: ABIRATERONE ACETATE
     Indication: Product used for unknown indication
     Dosage: TAKE 4 TABLETS BYMOUTH ONCE DAILY
     Route: 048
     Dates: end: 202209
  2. IBRUTINIB [Suspect]
     Active Substance: IBRUTINIB
     Route: 048

REACTIONS (1)
  - Adverse event [Unknown]
